FAERS Safety Report 11727694 (Version 2)
Quarter: 2015Q4

REPORT INFORMATION
  Report Type: Spontaneous
  Country: CH (occurrence: CH)
  Receive Date: 20151112
  Receipt Date: 20151113
  Transmission Date: 20160304
  Serious: Yes (Life-Threatening)
  Sender: FDA-Public Use
  Company Number: PHHY2015CH143533

PATIENT
  Age: 24 Year
  Sex: Male
  Weight: 100 kg

DRUGS (5)
  1. FLOXYFRAL M BRUCHRILLE [Interacting]
     Active Substance: FLUVOXAMINE MALEATE
     Indication: SCHIZOPHRENIA, PARANOID TYPE
     Dosage: 100 MG, QD
     Route: 048
     Dates: start: 20141103
  2. PANTOZOL [Suspect]
     Active Substance: PANTOPRAZOLE SODIUM
     Indication: ABDOMINAL DISCOMFORT
     Dosage: 20 MG, QD
     Route: 048
  3. TOPIRAMAT TEVA [Suspect]
     Active Substance: TOPIRAMATE
     Indication: WEIGHT INCREASED
     Dosage: 100 MG, BID
     Route: 048
     Dates: start: 20141212
  4. FLUANXOL ^LUNDBECK^ [Suspect]
     Active Substance: FLUPENTIXOL
     Indication: PRODUCT USED FOR UNKNOWN INDICATION
     Dosage: 5 MG, QD
     Route: 048
     Dates: start: 20141024
  5. CLOPIN ECO [Interacting]
     Active Substance: CLOZAPINE
     Indication: SCHIZOPHRENIA, PARANOID TYPE
     Dosage: 25 MG, BID
     Route: 048
     Dates: start: 20141110

REACTIONS (4)
  - Pulmonary embolism [Recovering/Resolving]
  - Pneumonia [Recovering/Resolving]
  - Pulmonary infarction [Recovering/Resolving]
  - Weight increased [Unknown]

NARRATIVE: CASE EVENT DATE: 20141212
